FAERS Safety Report 15795514 (Version 1)
Quarter: 2019Q1

REPORT INFORMATION
  Report Type: Spontaneous
  Country: US (occurrence: US)
  Receive Date: 20190107
  Receipt Date: 20190107
  Transmission Date: 20190417
  Serious: Yes (Other)
  Sender: FDA-Public Use
  Company Number: None

PATIENT
  Age: 58 Year
  Sex: Female
  Weight: 89 kg

DRUGS (2)
  1. DOXYCYCINE 100MG IVPB [Concomitant]
     Dates: start: 20190106, end: 20190106
  2. LACTATED RINGERS SOLUTION [Suspect]
     Active Substance: CALCIUM CHLORIDE\POTASSIUM CHLORIDE\SODIUM CHLORIDE\SODIUM LACTATE
     Indication: DEHYDRATION
     Dosage: ?          OTHER FREQUENCY:100ML/HR;?
     Route: 041
     Dates: start: 20190106, end: 20190106

REACTIONS (4)
  - Flushing [None]
  - Chest pain [None]
  - Pain [None]
  - Hyperhidrosis [None]

NARRATIVE: CASE EVENT DATE: 20190106
